FAERS Safety Report 4860415-4 (Version None)
Quarter: 2005Q4

REPORT INFORMATION
  Report Type: 
  Country: None (occurrence: None)
  Receive Date: 20051215
  Receipt Date: 20051208
  Transmission Date: 20060501
  Serious: Yes (Death, Hospitalization)
  Sender: FDA-Public Use
  Company Number: 2005070342

PATIENT
  Age: 86 Year
  Sex: Female
  Weight: 53.5244 kg

DRUGS (4)
  1. BEXTRA [Suspect]
     Indication: ARTHRITIS
     Dosage: 10 MG (10 MG, 1 IN 1 D), ORAL
     Route: 048
     Dates: start: 20041119
  2. COZAAR [Concomitant]
  3. SYNTHROID [Concomitant]
  4. DIAZIDE (GLICLAZIDE) [Concomitant]

REACTIONS (4)
  - EPISTAXIS [None]
  - PERFORATED ULCER [None]
  - RASH GENERALISED [None]
  - URINARY INCONTINENCE [None]
